FAERS Safety Report 6896720-X (Version None)
Quarter: 2010Q3

REPORT INFORMATION
  Report Type: 
  Country: None (occurrence: None)
  Receive Date: 20100802
  Receipt Date: 20070208
  Transmission Date: 20110219
  Serious: No
  Sender: FDA-Public Use
  Company Number: US-PFIZER INC-2006132639

PATIENT
  Sex: Female
  Weight: 68.04 kg

DRUGS (2)
  1. LYRICA [Suspect]
     Indication: NEURALGIA
     Dates: start: 20060901, end: 20061001
  2. ESTRATEST [Concomitant]

REACTIONS (3)
  - ABDOMINAL DISTENSION [None]
  - DRUG INEFFECTIVE [None]
  - WEIGHT INCREASED [None]
